FAERS Safety Report 16826411 (Version 2)
Quarter: 2019Q4

REPORT INFORMATION
  Report Type: Spontaneous
  Country: JP (occurrence: JP)
  Receive Date: 20190919
  Receipt Date: 20191204
  Transmission Date: 20200122
  Serious: Yes (Hospitalization, Other)
  Sender: FDA-Public Use
  Company Number: JP-PFIZER INC-2019396245

PATIENT
  Age: 6 Year
  Sex: Male

DRUGS (5)
  1. PHENOBAL [PHENOBARBITAL] [Concomitant]
     Active Substance: PHENOBARBITAL
  2. RACOL NF [Concomitant]
     Active Substance: AMINO ACIDS\DEXTROSE\ELECTROLYTES NOS\SOYBEAN OIL\VITAMINS
     Route: 048
  3. ETIZOLAM [Concomitant]
     Active Substance: ETIZOLAM
     Route: 048
  4. GABAPEN [Suspect]
     Active Substance: GABAPENTIN
     Indication: EPILEPSY
     Dosage: 250 MG, DAILY
     Route: 048
  5. SODIUM PICOSULFATE [Concomitant]
     Active Substance: SODIUM PICOSULFATE
     Route: 048

REACTIONS (5)
  - Muscle tightness [Recovering/Resolving]
  - White blood cell count decreased [Recovering/Resolving]
  - Neuroleptic malignant syndrome [Recovering/Resolving]
  - Blood creatine phosphokinase decreased [Recovering/Resolving]
  - Pyrexia [Recovering/Resolving]

NARRATIVE: CASE EVENT DATE: 20190630
